FAERS Safety Report 16411627 (Version 3)
Quarter: 2019Q3

REPORT INFORMATION
  Report Type: Spontaneous
  Country: CA (occurrence: CA)
  Receive Date: 20190610
  Receipt Date: 20190904
  Transmission Date: 20191004
  Serious: Yes (Death, Hospitalization, Disabling, Other)
  Sender: FDA-Public Use
  Company Number: CA-PFIZER INC-2016SE50688

PATIENT
  Age: 62 Year
  Sex: Male
  Weight: 92 kg

DRUGS (21)
  1. TIGECYCLINE. [Suspect]
     Active Substance: TIGECYCLINE
     Indication: INTERVERTEBRAL DISCITIS
     Dosage: 50 MG, GIVEN FOR A WEEK
     Route: 042
     Dates: start: 201603, end: 20160322
  2. LINEZOLID. [Suspect]
     Active Substance: LINEZOLID
     Indication: INTERVERTEBRAL DISCITIS
     Dosage: UNK
     Route: 048
  3. TIGECYCLINE. [Suspect]
     Active Substance: TIGECYCLINE
     Indication: OSTEOMYELITIS
     Dosage: 100 MG, UNK
     Route: 042
     Dates: start: 20160314, end: 20160314
  4. RIFAMPICIN [Suspect]
     Active Substance: RIFAMPIN
     Indication: INTERVERTEBRAL DISCITIS
     Dosage: UNK
     Route: 048
  5. DOXYCYCLINE HYCLATE. [Suspect]
     Active Substance: DOXYCYCLINE HYCLATE
     Indication: INTERVERTEBRAL DISCITIS
     Dosage: UNK
     Route: 048
  6. CUBICIN [Suspect]
     Active Substance: DAPTOMYCIN
     Indication: INTERVERTEBRAL DISCITIS
     Dosage: 700 MG, DAILY  (APPROXIMATELY 8MG/KG)
     Route: 042
     Dates: start: 20160122, end: 20160226
  7. RIFAMPICIN [Suspect]
     Active Substance: RIFAMPIN
     Indication: OSTEOMYELITIS
     Dosage: 300 MG, 2X/DAY
     Route: 048
     Dates: start: 20160314, end: 20160322
  8. CEFTAROLINE FOSAMIL [Suspect]
     Active Substance: CEFTAROLINE FOSAMIL
     Indication: PARASPINAL ABSCESS
  9. TIGECYCLINE. [Suspect]
     Active Substance: TIGECYCLINE
     Indication: PARASPINAL ABSCESS
     Dosage: UNK
     Route: 042
  10. RIFAMPICIN [Suspect]
     Active Substance: RIFAMPIN
     Indication: PARASPINAL ABSCESS
  11. CEFTAROLINE FOSAMIL [Suspect]
     Active Substance: CEFTAROLINE FOSAMIL
     Indication: OSTEOMYELITIS
     Dosage: 300 MG, 2X/DAY
     Route: 042
     Dates: start: 20160322, end: 20160411
  12. CEFTAROLINE FOSAMIL [Suspect]
     Active Substance: CEFTAROLINE FOSAMIL
     Indication: INTERVERTEBRAL DISCITIS
     Dosage: UNK
     Route: 042
  13. VANCOMYCIN HCL [Suspect]
     Active Substance: VANCOMYCIN HYDROCHLORIDE
     Indication: INTERVERTEBRAL DISCITIS
     Dosage: UNK
  14. VANCOMYCIN HCL [Suspect]
     Active Substance: VANCOMYCIN HYDROCHLORIDE
     Indication: PARASPINAL ABSCESS
  15. LINEZOLID. [Suspect]
     Active Substance: LINEZOLID
     Indication: OSTEOMYELITIS
     Dosage: 600 MG, 2X/DAY
     Route: 048
     Dates: start: 20160226, end: 20160314
  16. DOXYCYCLINE HYCLATE. [Suspect]
     Active Substance: DOXYCYCLINE HYCLATE
     Indication: PARASPINAL ABSCESS
  17. CUBICIN [Suspect]
     Active Substance: DAPTOMYCIN
     Indication: PARASPINAL ABSCESS
     Dosage: UNK
     Route: 042
  18. DOXYCYCLINE HYCLATE. [Suspect]
     Active Substance: DOXYCYCLINE HYCLATE
     Indication: OSTEOMYELITIS
     Dosage: 100 MG, 2X/DAY
     Route: 048
     Dates: start: 20160229, end: 20160314
  19. CUBICIN [Suspect]
     Active Substance: DAPTOMYCIN
     Indication: OSTEOMYELITIS
     Dosage: 900 MG, DAILY (APPROXIMATELY 10MG/KG)
     Route: 042
     Dates: start: 20160120, end: 20160121
  20. VANCOMYCIN HCL [Suspect]
     Active Substance: VANCOMYCIN HYDROCHLORIDE
     Indication: OSTEOMYELITIS
     Dosage: UNK, (TARGET TROUGH 15-20 MG/L)
     Route: 042
     Dates: start: 20151127, end: 20160120
  21. LINEZOLID. [Suspect]
     Active Substance: LINEZOLID
     Indication: PARASPINAL ABSCESS

REACTIONS (8)
  - Hypophagia [Unknown]
  - Product use in unapproved indication [Unknown]
  - Staphylococcal infection [Fatal]
  - General physical health deterioration [Fatal]
  - Off label use [Unknown]
  - Treatment failure [Unknown]
  - Transaminases increased [Unknown]
  - Thrombocytopenia [Unknown]

NARRATIVE: CASE EVENT DATE: 2016
